FAERS Safety Report 5184319-5 (Version None)
Quarter: 2006Q4

REPORT INFORMATION
  Report Type: 
  Country: None (occurrence: None)
  Receive Date: 20061220
  Receipt Date: 20060329
  Transmission Date: 20070319
  Serious: No
  Sender: FDA-Public Use
  Company Number: US-GLAXOSMITHKLINE-A0599483A

PATIENT
  Age: 64 Year

DRUGS (2)
  1. NICODERM CQ [Suspect]
  2. LEXAPRO [Concomitant]

REACTIONS (2)
  - ALOPECIA [None]
  - INTENTIONAL DRUG MISUSE [None]
